FAERS Safety Report 14956202 (Version 1)
Quarter: 2018Q2

REPORT INFORMATION
  Report Type: Spontaneous
  Country: US (occurrence: US)
  Receive Date: 20180531
  Receipt Date: 20180531
  Transmission Date: 20180711
  Serious: No
  Sender: FDA-Public Use
  Company Number: US-NOVEN PHARMACEUTICALS, INC.-US2017000550

PATIENT

DRUGS (5)
  1. DAYTRANA [Suspect]
     Active Substance: METHYLPHENIDATE
     Dosage: CUTTING 20 MG INTO HALF, UNKNOWN
     Route: 062
     Dates: start: 201704
  2. DAYTRANA [Suspect]
     Active Substance: METHYLPHENIDATE
     Dosage: 10 MG, UNKNOWN
     Route: 062
     Dates: start: 201703, end: 201704
  3. DAYTRANA [Suspect]
     Active Substance: METHYLPHENIDATE
     Dosage: 20 MG, UNKNOWN
     Route: 062
     Dates: end: 201703
  4. RITALIN [Concomitant]
     Active Substance: METHYLPHENIDATE HYDROCHLORIDE
     Indication: ATTENTION DEFICIT/HYPERACTIVITY DISORDER
     Dosage: 5 MG, MORNING
  5. DAYTRANA [Suspect]
     Active Substance: METHYLPHENIDATE
     Indication: ATTENTION DEFICIT/HYPERACTIVITY DISORDER
     Dosage: 15 MG, UNKNOWN
     Route: 062
     Dates: start: 2015

REACTIONS (4)
  - Off label use [Unknown]
  - Decreased appetite [Recovered/Resolved]
  - Anxiety [Recovered/Resolved]
  - Wrong technique in product usage process [Not Recovered/Not Resolved]

NARRATIVE: CASE EVENT DATE: 201704
